FAERS Safety Report 9415577 (Version 1)
Quarter: 2013Q3

REPORT INFORMATION
  Report Type: Report from Study
  Country: GB (occurrence: GB)
  Receive Date: 20130723
  Receipt Date: 20130723
  Transmission Date: 20140515
  Serious: Yes (Hospitalization)
  Sender: FDA-Public Use
  Company Number: GB-JNJFOC-20130709218

PATIENT
  Age: 58 Year
  Sex: Female
  Weight: 79.3 kg

DRUGS (8)
  1. USTEKINUMAB [Suspect]
     Indication: PSORIASIS
     Route: 058
     Dates: start: 20121020
  2. USTEKINUMAB [Suspect]
     Indication: PSORIASIS
     Route: 058
     Dates: start: 20110720, end: 20120617
  3. ELOCON CREAM [Concomitant]
     Dates: start: 20100825
  4. TACROLIMUS [Concomitant]
     Route: 061
     Dates: start: 20100825, end: 20121001
  5. DOUBLEBASE [Concomitant]
     Dates: start: 20100825
  6. PSORADERM 5 [Concomitant]
     Dates: start: 20100825
  7. ETRIVEX SHAMPOO [Concomitant]
     Dates: start: 20100825
  8. CICLOSPORIN [Concomitant]
     Dates: start: 20090605, end: 20121121

REACTIONS (1)
  - Diverticulitis [Recovered/Resolved]
